FAERS Safety Report 7134406-7 (Version None)
Quarter: 2010Q4

REPORT INFORMATION
  Report Type: 
  Country: None (occurrence: None)
  Receive Date: 20101203
  Receipt Date: 20101119
  Transmission Date: 20110411
  Serious: Yes (Other)
  Sender: FDA-Public Use
  Company Number: PHHY2010BR27290

PATIENT
  Sex: Male

DRUGS (1)
  1. DIOVAN TRIPLE [Suspect]
     Dosage: 1 TABLET (160/10/12.5 MG) DAILY
     Dates: start: 20091026, end: 20100301

REACTIONS (3)
  - BURNING SENSATION [None]
  - HYPERTENSION [None]
  - OEDEMA PERIPHERAL [None]
